FAERS Safety Report 5067575-3 (Version None)
Quarter: 2006Q3

REPORT INFORMATION
  Report Type: 
  Country: None (occurrence: None)
  Receive Date: 20060731
  Receipt Date: 20060711
  Transmission Date: 20061208
  Serious: Yes (Other)
  Sender: FDA-Public Use
  Company Number: US200607000939

PATIENT
  Age: 29 Year
  Sex: Female

DRUGS (5)
  1. PROZAC [Suspect]
     Indication: DEPRESSION
     Dosage: 20 MG, DAILY (1/D), ORAL
     Route: 048
     Dates: start: 20000101
  2. VITAMIN A [Concomitant]
  3. VITAMIN B COMPLEX CAP [Concomitant]
  4. ASCORBIC ACID [Concomitant]
  5. VITAMIN E [Concomitant]

REACTIONS (18)
  - BLISTER [None]
  - CONFUSIONAL STATE [None]
  - DENTAL OPERATION [None]
  - DEVICE MIGRATION [None]
  - DRUG HYPERSENSITIVITY [None]
  - EMOTIONAL DISTRESS [None]
  - ERYTHEMA [None]
  - EXOPHTHALMOS [None]
  - JAW FRACTURE [None]
  - OCULAR HYPERAEMIA [None]
  - OEDEMA PERIPHERAL [None]
  - ORAL INFECTION [None]
  - PLASTIC SURGERY TO THE FACE [None]
  - SKIN BACTERIAL INFECTION [None]
  - SKIN EXFOLIATION [None]
  - SUICIDAL IDEATION [None]
  - TOOTH EXTRACTION [None]
  - UNEVALUABLE EVENT [None]
